FAERS Safety Report 8435676-5 (Version None)
Quarter: 2012Q2

REPORT INFORMATION
  Report Type: 
  Country: None (occurrence: None)
  Receive Date: 20120614
  Receipt Date: 20120607
  Transmission Date: 20120825
  Serious: Yes (Hospitalization, Other)
  Sender: FDA-Public Use
  Company Number: US-JNJFOC-20091007189

PATIENT
  Sex: Male
  Weight: 52.89 kg

DRUGS (9)
  1. FLUCONAZOLE [Suspect]
     Indication: PRODUCT USED FOR UNKNOWN INDICATION
     Dates: end: 20091001
  2. 5-AMINOSALICYLIC ACID [Concomitant]
     Route: 048
  3. OMEPRAZOLE [Concomitant]
  4. PREDNISONE TAB [Concomitant]
  5. MULTIPLE VITAMIN [Concomitant]
  6. LEVSIN PB [Concomitant]
  7. ZOSYN [Suspect]
     Indication: PRODUCT USED FOR UNKNOWN INDICATION
     Dates: end: 20091026
  8. INFLIXIMAB [Suspect]
     Indication: INFLAMMATORY BOWEL DISEASE
     Route: 042
     Dates: start: 20081222, end: 20090814
  9. SLOW FE [Concomitant]

REACTIONS (11)
  - ENTEROCOCCAL INFECTION [None]
  - THROMBOCYTOPENIA [None]
  - PYREXIA [None]
  - WEIGHT DECREASED [None]
  - DEHYDRATION [None]
  - OSTEOMYELITIS [None]
  - NEUTROPENIA [None]
  - LACTOBACILLUS INFECTION [None]
  - HEPATIC ENZYME INCREASED [None]
  - CANDIDIASIS [None]
  - RETROPERITONEAL ABSCESS [None]
